FAERS Safety Report 9798931 (Version 3)
Quarter: 2015Q3

REPORT INFORMATION
  Report Type: Spontaneous
  Country: US (occurrence: US)
  Receive Date: 20140106
  Receipt Date: 20150806
  Transmission Date: 20151125
  Serious: Yes (Other)
  Sender: FDA-Public Use
  Company Number: US-GILEAD-2010-0033418

PATIENT
  Age: 59 Year
  Sex: Female

DRUGS (1)
  1. LETAIRIS [Suspect]
     Active Substance: AMBRISENTAN
     Indication: PULMONARY ARTERIAL HYPERTENSION
     Dates: start: 20101020, end: 20101027

REACTIONS (8)
  - Peripheral swelling [Unknown]
  - Chest pain [Unknown]
  - Dyspnoea [Unknown]
  - Angioedema [Unknown]
  - Headache [Unknown]
  - Chest discomfort [Unknown]
  - Oedema [Unknown]
  - Nasal congestion [Unknown]
